FAERS Safety Report 19630579 (Version 1)
Quarter: 2021Q3

REPORT INFORMATION
  Report Type: Spontaneous
  Country: US (occurrence: US)
  Receive Date: 20210729
  Receipt Date: 20210729
  Transmission Date: 20211014
  Serious: No
  Sender: FDA-Public Use
  Company Number: US-PFIZER INC-2021574782

PATIENT
  Age: 72 Year
  Sex: Female

DRUGS (1)
  1. XELJANZ [Suspect]
     Active Substance: TOFACITINIB CITRATE
     Indication: RHEUMATOID ARTHRITIS
     Dosage: 5 MG, 1X/DAY (ONCE A DAY EVERY AFTERNOON)
     Route: 048

REACTIONS (5)
  - Arthralgia [Recovered/Resolved]
  - Discouragement [Recovered/Resolved]
  - Depressed mood [Unknown]
  - Off label use [Unknown]
  - Memory impairment [Unknown]
